FAERS Safety Report 7624431-1 (Version None)
Quarter: 2011Q3

REPORT INFORMATION
  Report Type: 
  Country: None (occurrence: None)
  Receive Date: 20110712
  Receipt Date: 20110630
  Transmission Date: 20111222
  Serious: Yes (Death)
  Sender: FDA-Public Use
  Company Number: 2011SP030832

PATIENT
  Age: 29 Year
  Sex: Female

DRUGS (2)
  1. NUVARING [Suspect]
     Indication: CONTRACEPTION
     Dosage: VAG
     Route: 067
     Dates: start: 20090301, end: 20091201
  2. TEGRETOL [Concomitant]

REACTIONS (1)
  - RUPTURED CEREBRAL ANEURYSM [None]
